FAERS Safety Report 16016388 (Version 1)
Quarter: 2019Q1

REPORT INFORMATION
  Report Type: Spontaneous
  Country: US (occurrence: US)
  Receive Date: 20190131
  Receipt Date: 20190131
  Transmission Date: 20190418
  Serious: No
  Sender: FDA-Public Use
  Company Number: None

PATIENT
  Age: 78 Year
  Sex: Female

DRUGS (1)
  1. ENOXAPARIN SYR 60MG/0.6ML [Suspect]
     Active Substance: ENOXAPARIN
     Dates: start: 201806

REACTIONS (3)
  - Pruritus [None]
  - Post procedural complication [None]
  - Injection site pain [None]

NARRATIVE: CASE EVENT DATE: 20190131
